FAERS Safety Report 4385219-0 (Version None)
Quarter: 2004Q2

REPORT INFORMATION
  Report Type: 
  Country: None (occurrence: None)
  Receive Date: 20040625
  Receipt Date: 20030130
  Transmission Date: 20050107
  Serious: Yes (Death, Hospitalization)
  Sender: FDA-Public Use
  Company Number: US-MERCK-0302USA00111

PATIENT
  Age: 63 Year
  Sex: Female
  Weight: 50 kg

DRUGS (8)
  1. TYLENOL [Concomitant]
     Route: 065
  2. NORVASC [Concomitant]
     Route: 048
  3. ASPIRIN [Concomitant]
     Route: 065
  4. PREVACID [Concomitant]
     Route: 065
  5. UNIVASC [Concomitant]
     Indication: HYPERTENSION
     Route: 065
  6. PRILOSEC [Concomitant]
     Route: 065
  7. VIOXX [Suspect]
     Indication: MIGRAINE
     Route: 048
     Dates: start: 20001101, end: 20001101
  8. VIOXX [Suspect]
     Route: 048
     Dates: start: 20001103, end: 20001103

REACTIONS (2)
  - CEREBRAL INFARCTION [None]
  - THYROID DISORDER [None]
